FAERS Safety Report 9242376 (Version 1)
Quarter: 2013Q2

REPORT INFORMATION
  Report Type: Report from Study
  Country: BR (occurrence: BR)
  Receive Date: 20130419
  Receipt Date: 20130419
  Transmission Date: 20140414
  Serious: Yes (Hospitalization)
  Sender: FDA-Public Use
  Company Number: BR-ABBOTT-13P-020-1077403-00

PATIENT
  Age: 76 Year
  Sex: Female
  Weight: 67 kg

DRUGS (6)
  1. HUMIRA [Suspect]
     Indication: ANKYLOSING SPONDYLITIS
     Route: 058
     Dates: start: 20130214
  2. VINPOCETINE [Concomitant]
     Indication: CARDIAC DISORDER
     Route: 048
  3. BETAHISTINE HYDROCHLORIDE [Concomitant]
     Indication: CARDIAC DISORDER
     Route: 048
  4. PRAVASTATIN SODIUM [Concomitant]
     Indication: CARDIAC DISORDER
     Route: 048
  5. NEBIVOLOL [Concomitant]
     Indication: CARDIAC DISORDER
     Route: 048
  6. BENICAR HCT [Concomitant]
     Indication: CARDIAC DISORDER
     Dosage: 40MG + 25MG
     Route: 048

REACTIONS (3)
  - Chest discomfort [Unknown]
  - Dyspnoea [Recovering/Resolving]
  - Muscle spasms [Not Recovered/Not Resolved]
